FAERS Safety Report 15984414 (Version 2)
Quarter: 2019Q2

REPORT INFORMATION
  Report Type: Report from Study
  Country: PL (occurrence: PL)
  Receive Date: 20190220
  Receipt Date: 20190408
  Transmission Date: 20190711
  Serious: Yes (Other)
  Sender: FDA-Public Use
  Company Number: PL-CHIESI USA, INC.-PL-2019CHI000062

PATIENT
  Age: 0 Day
  Sex: Female
  Weight: 1.9 kg

DRUGS (4)
  1. CAFFEINE CITRATE. [Concomitant]
     Active Substance: CAFFEINE CITRATE
     Dosage: 9 MG/KG, UNK (FROM THE SECOND DAY OF LIFE)
  2. CUROSURF [Suspect]
     Active Substance: PORACTANT ALFA
     Indication: NEONATAL RESPIRATORY DISTRESS SYNDROME
     Dosage: 4.5 ML, SINGLE
     Route: 039
     Dates: start: 20190204, end: 20190204
  3. CAFFEINE CITRATE. [Concomitant]
     Active Substance: CAFFEINE CITRATE
     Indication: PROPHYLAXIS
     Dosage: 19 MG/KG, UNK (INITIAL DOSE)
     Dates: start: 20190204
  4. KETAMINE [Concomitant]
     Active Substance: KETAMINE
     Indication: PREMEDICATION
     Dosage: 2 MG, UNK
     Dates: start: 20190204

REACTIONS (3)
  - Neonatal hypoxia [Recovered/Resolved]
  - Infantile apnoea [Recovered/Resolved]
  - Product administration error [Recovered/Resolved]

NARRATIVE: CASE EVENT DATE: 20190204
